FAERS Safety Report 11172247 (Version 1)
Quarter: 2015Q2

REPORT INFORMATION
  Report Type: Spontaneous
  Country: CA (occurrence: CA)
  Receive Date: 20150608
  Receipt Date: 20150608
  Transmission Date: 20150821
  Serious: Yes (Life-Threatening)
  Sender: FDA-Public Use
  Company Number: CA-ELI_LILLY_AND_COMPANY-CA201506000768

PATIENT
  Age: 71 Year
  Sex: Male
  Weight: 115.65 kg

DRUGS (6)
  1. LAMISIL [Concomitant]
     Active Substance: TERBINAFINE HYDROCHLORIDE
  2. PMS-HYDROCHLOROTHIAZID [Concomitant]
  3. RAN-RAMIPRIL [Concomitant]
  4. GLYCON                             /00082702/ [Concomitant]
  5. TECTA [Concomitant]
     Active Substance: PANTOPRAZOLE MAGNESIUM
  6. HUMULIN N [Suspect]
     Active Substance: INSULIN HUMAN
     Indication: DIABETES MELLITUS
     Dosage: 48 U, QD
     Route: 058

REACTIONS (4)
  - Dyspnoea [Recovered/Resolved]
  - Dizziness [Recovered/Resolved]
  - Rash pruritic [Recovered/Resolved]
  - Urticaria [Recovered/Resolved]
